FAERS Safety Report 11102422 (Version 1)
Quarter: 2015Q2

REPORT INFORMATION
  Report Type: Spontaneous
  Country: US (occurrence: US)
  Receive Date: 20150511
  Receipt Date: 20150511
  Transmission Date: 20150821
  Serious: No
  Sender: FDA-Public Use
  Company Number: US-TEVA-560495ACC

PATIENT
  Age: 29 Year
  Sex: Female
  Weight: 91.25 kg

DRUGS (1)
  1. PARAGARD T 380A [Suspect]
     Active Substance: COPPER
     Indication: CONTRACEPTION
     Route: 015
     Dates: start: 20150414, end: 20150428

REACTIONS (2)
  - Device expulsion [Recovered/Resolved]
  - Vaginal discharge [Unknown]

NARRATIVE: CASE EVENT DATE: 20150428
